FAERS Safety Report 17334685 (Version 2)
Quarter: 2020Q1

REPORT INFORMATION
  Report Type: Spontaneous
  Country: IT (occurrence: IT)
  Receive Date: 20200128
  Receipt Date: 20200313
  Transmission Date: 20200409
  Serious: Yes (Death, Hospitalization)
  Sender: FDA-Public Use
  Company Number: IT-BIOGEN-2020BI00830620

PATIENT
  Sex: Female

DRUGS (2)
  1. SPINRAZA [Suspect]
     Active Substance: NUSINERSEN
     Dosage: LOADING DOSE COMPLETED ON 11-SEP-2019
     Route: 037
     Dates: start: 20190911
  2. SPINRAZA [Suspect]
     Active Substance: NUSINERSEN
     Indication: SPINAL MUSCULAR ATROPHY
     Dosage: TWO DOSES IN JUL 2019, ONE DOSE IN AUG 2019, AND ONE IN SEP 2019.
     Route: 037
     Dates: start: 201907

REACTIONS (1)
  - Respiratory disorder [Fatal]
